FAERS Safety Report 5092803-8 (Version None)
Quarter: 2006Q3

REPORT INFORMATION
  Report Type: 
  Country: None (occurrence: None)
  Receive Date: 20060828
  Receipt Date: 20060222
  Transmission Date: 20061208
  Serious: Yes (Hospitalization)
  Sender: FDA-Public Use
  Company Number: 805#1#2006-00009

PATIENT
  Age: 54 Year
  Sex: Male

DRUGS (6)
  1. ALPROSTADIL [Suspect]
     Indication: PERIPHERAL VASCULAR DISORDER
     Dosage: 120 MCG INTRAVENOUS DRIP
     Route: 041
     Dates: start: 20051128, end: 20051226
  2. SODIUM BICARBONATE IN PLASTIC CONTAINER [Concomitant]
  3. STRONG NEO-MINOPHAGEN C (AMINOACETIC ACID, CYSTEINE, GLYCYRRHIZIC ACID [Concomitant]
  4. VANCOMYCIN HYDROCHLORIDE [Concomitant]
  5. TEICOPLANIN (TEICOPLANIN) [Concomitant]
  6. ARBEKACIN (ARBEKACIN) [Concomitant]

REACTIONS (11)
  - ATELECTASIS [None]
  - BACTERIA URINE [None]
  - BLOOD ALBUMIN DECREASED [None]
  - LYMPHADENOPATHY [None]
  - OPEN WOUND [None]
  - PLATELET COUNT DECREASED [None]
  - PLATELET COUNT INCREASED [None]
  - PLEURAL EFFUSION [None]
  - PULMONARY CONGESTION [None]
  - STAPHYLOCOCCAL BACTERAEMIA [None]
  - WOUND INFECTION [None]
